FAERS Safety Report 6698065-X (Version None)
Quarter: 2010Q2

REPORT INFORMATION
  Report Type: 
  Country: None (occurrence: None)
  Receive Date: 20100427
  Receipt Date: 20100422
  Transmission Date: 20101027
  Serious: Yes (Death, Hospitalization)
  Sender: FDA-Public Use
  Company Number: US-SANOFI-AVENTIS-2010SA003842

PATIENT
  Age: 76 Year
  Sex: Male
  Weight: 87.2 kg

DRUGS (10)
  1. AFLIBERCEPT [Suspect]
     Route: 042
     Dates: start: 20090521, end: 20090521
  2. AFLIBERCEPT [Suspect]
     Route: 042
     Dates: start: 20091222, end: 20091222
  3. DOCETAXEL [Suspect]
     Route: 042
     Dates: start: 20091222, end: 20091222
  4. DOCETAXEL [Suspect]
     Route: 042
     Dates: start: 20090521, end: 20090521
  5. PREDNISONE TAB [Suspect]
     Route: 048
     Dates: start: 20090521, end: 20091222
  6. GLANIL [Concomitant]
     Dates: start: 20090516
  7. SAW PALMETTO [Concomitant]
     Dates: start: 20090518
  8. SENOKOT /UNK/ [Concomitant]
     Dates: start: 20090610
  9. PEPCID [Concomitant]
     Dates: start: 20090610
  10. PROCHLORPERAZINE [Concomitant]
     Dates: start: 20090529

REACTIONS (2)
  - HAEMOGLOBIN DECREASED [None]
  - HYPOGLYCAEMIA [None]
